FAERS Safety Report 21484137 (Version 7)
Quarter: 2023Q4

REPORT INFORMATION
  Report Type: Other
  Country: CA (occurrence: None)
  Receive Date: 20221020
  Receipt Date: 20231113
  Transmission Date: 20240109
  Serious: Yes (Other)
  Sender: FDA-Public Use
  Company Number: CA-ROCHE-2048083

PATIENT
  Age: 44 Year
  Sex: Female
  Weight: 67.35 kg

DRUGS (11)
  1. OCREVUS [Suspect]
     Active Substance: OCRELIZUMAB
     Indication: Relapsing-remitting multiple sclerosis
     Dosage: THEN 600 MG Q6M
     Route: 042
     Dates: start: 20171212
  2. OCREVUS [Suspect]
     Active Substance: OCRELIZUMAB
     Route: 042
     Dates: start: 20180620
  3. OCREVUS [Suspect]
     Active Substance: OCRELIZUMAB
     Route: 042
     Dates: start: 20200717
  4. ACETAMINOPHEN [Concomitant]
     Active Substance: ACETAMINOPHEN
     Indication: Premedication
     Route: 048
  5. BENADRYL [Concomitant]
     Active Substance: DIPHENHYDRAMINE HYDROCHLORIDE
     Indication: Premedication
     Route: 048
  6. AVALIDE [Concomitant]
     Active Substance: HYDROCHLOROTHIAZIDE\IRBESARTAN
  7. LIPITOR [Concomitant]
     Active Substance: ATORVASTATIN CALCIUM
  8. PULMICORT TURBUHALER [Concomitant]
     Active Substance: BUDESONIDE
  9. BRICANYL [Concomitant]
     Active Substance: TERBUTALINE SULFATE
  10. LYRICA [Concomitant]
     Active Substance: PREGABALIN
  11. SOLU-MEDROL [Concomitant]
     Active Substance: METHYLPREDNISOLONE SODIUM SUCCINATE
     Indication: Premedication
     Route: 042

REACTIONS (47)
  - Peripheral venous disease [Unknown]
  - Gastrooesophageal reflux disease [Unknown]
  - Cough [Not Recovered/Not Resolved]
  - Rhinorrhoea [Unknown]
  - Abdominal pain [Recovered/Resolved]
  - Infusion related reaction [Unknown]
  - Infusion related reaction [Recovered/Resolved]
  - Wound [Unknown]
  - Headache [Unknown]
  - Impaired healing [Unknown]
  - Influenza like illness [Unknown]
  - Illness [Not Recovered/Not Resolved]
  - Dyspnoea [Not Recovered/Not Resolved]
  - Peripheral venous disease [Not Recovered/Not Resolved]
  - Asthenia [Not Recovered/Not Resolved]
  - Cognitive disorder [Not Recovered/Not Resolved]
  - Fatigue [Not Recovered/Not Resolved]
  - Periorbital swelling [Recovering/Resolving]
  - Hypertension [Recovered/Resolved]
  - Visual impairment [Recovering/Resolving]
  - Hypokinesia [Recovered/Resolved]
  - Oedema peripheral [Unknown]
  - Fatigue [Recovered/Resolved]
  - Balance disorder [Recovered/Resolved]
  - Tachycardia [Not Recovered/Not Resolved]
  - Pain in extremity [Not Recovered/Not Resolved]
  - Menopause [Not Recovered/Not Resolved]
  - Chills [Not Recovered/Not Resolved]
  - Body temperature decreased [Unknown]
  - Sensory loss [Unknown]
  - Contusion [Unknown]
  - Depressed mood [Unknown]
  - Cardiac disorder [Unknown]
  - Heart rate increased [Unknown]
  - Palpitations [Unknown]
  - Hypersomnia [Recovered/Resolved]
  - Blood cholesterol increased [Unknown]
  - Oxygen saturation abnormal [Unknown]
  - Vertigo [Unknown]
  - Thermal burn [Unknown]
  - Cognitive disorder [Unknown]
  - Autonomic nervous system imbalance [Unknown]
  - Chest pain [Not Recovered/Not Resolved]
  - Cataract [Not Recovered/Not Resolved]
  - Keratoconus [Not Recovered/Not Resolved]
  - Angina pectoris [Unknown]
  - Vascular access site bruising [Recovered/Resolved]

NARRATIVE: CASE EVENT DATE: 20171227
